FAERS Safety Report 17599705 (Version 1)
Quarter: 2020Q1

REPORT INFORMATION
  Report Type: Spontaneous
  Country: US (occurrence: US)
  Receive Date: 20200330
  Receipt Date: 20200330
  Transmission Date: 20200409
  Serious: No
  Sender: FDA-Public Use
  Company Number: None

PATIENT
  Age: 60 Year
  Sex: Female
  Weight: 56.7 kg

DRUGS (13)
  1. TOPIRIMATE [Concomitant]
     Active Substance: TOPIRAMATE
  2. TENS UNIT [Concomitant]
  3. VIACTIC PLUS D [Concomitant]
  4. VITAMIN D [Concomitant]
     Active Substance: VITAMIN D NOS
  5. LECITHIN [Concomitant]
     Active Substance: LECITHIN
  6. METAXALONE. [Concomitant]
     Active Substance: METAXALONE
  7. SUMATRIPTAN INJECTION AUTOINJECTOR SYSTEM 6MG/0.5 ML [Suspect]
     Active Substance: SUMATRIPTAN
  8. DULOXETINE. [Concomitant]
     Active Substance: DULOXETINE
  9. HYDROCODONE [Concomitant]
     Active Substance: HYDROCODONE
  10. ACYCLOVIR. [Concomitant]
     Active Substance: ACYCLOVIR
  11. ONDANSETRON [Concomitant]
     Active Substance: ONDANSETRON
  12. ALENDRONATE [Concomitant]
     Active Substance: ALENDRONATE SODIUM
  13. GLUCOSAMINE/CHONDROTINE [Concomitant]

REACTIONS (3)
  - Migraine [None]
  - Treatment failure [None]
  - Vomiting [None]

NARRATIVE: CASE EVENT DATE: 20200318
